FAERS Safety Report 9293488 (Version 1)
Quarter: 2013Q2

REPORT INFORMATION
  Report Type: Spontaneous
  Country: SG (occurrence: SG)
  Receive Date: 20130516
  Receipt Date: 20130516
  Transmission Date: 20140414
  Serious: Yes (Other)
  Sender: FDA-Public Use
  Company Number: PHHY2013SG048482

PATIENT
  Sex: Female

DRUGS (1)
  1. AMPICILLIN [Suspect]

REACTIONS (5)
  - Renal failure [Recovered/Resolved]
  - Dermatitis exfoliative [Not Recovered/Not Resolved]
  - Eosinophilia [Not Recovered/Not Resolved]
  - Tubulointerstitial nephritis [Recovered/Resolved]
  - Rash [Not Recovered/Not Resolved]
